FAERS Safety Report 25988523 (Version 2)
Quarter: 2025Q4

REPORT INFORMATION
  Report Type: Report from Study
  Country: EU (occurrence: EU)
  Receive Date: 20251103
  Receipt Date: 20251210
  Transmission Date: 20260118
  Serious: Yes (Hospitalization, Other)
  Sender: ROCHE
  Company Number: None

PATIENT
  Age: 6 Decade
  Sex: Female

DRUGS (35)
  1. RITUXIMAB [Suspect]
     Active Substance: RITUXIMAB
     Indication: Rheumatoid arthritis
     Dosage: 1000 MG
  2. RITUXIMAB [Suspect]
     Active Substance: RITUXIMAB
     Dosage: 1000 MG
  3. RITUXIMAB [Suspect]
     Active Substance: RITUXIMAB
     Dosage: 1000MG/6 MONTHS
  4. RITUXIMAB [Suspect]
     Active Substance: RITUXIMAB
     Dosage: 1000 MG
  5. RITUXIMAB [Suspect]
     Active Substance: RITUXIMAB
     Dosage: 10.2017/ 1000
  6. RITUXIMAB [Suspect]
     Active Substance: RITUXIMAB
     Dosage: 04.2018/ 1000
  7. RITUXIMAB [Suspect]
     Active Substance: RITUXIMAB
     Dosage: 10.2018/ 1000
  8. RITUXIMAB [Suspect]
     Active Substance: RITUXIMAB
     Dosage: 05.2019/ 1000
  9. RITUXIMAB [Suspect]
     Active Substance: RITUXIMAB
     Dosage: 11.2019/ 1000
  10. RITUXIMAB [Suspect]
     Active Substance: RITUXIMAB
     Dosage: 06.2020/ 1000
  11. RITUXIMAB [Suspect]
     Active Substance: RITUXIMAB
     Dosage: 01.2021/ 1000
  12. RITUXIMAB [Suspect]
     Active Substance: RITUXIMAB
     Dosage: 09.2021/ 1000
  13. RITUXIMAB [Suspect]
     Active Substance: RITUXIMAB
     Dosage: 04.2022/ 1000
  14. RITUXIMAB [Suspect]
     Active Substance: RITUXIMAB
     Dosage: 11.2022/ 1000
  15. RITUXIMAB [Suspect]
     Active Substance: RITUXIMAB
     Dosage: 02.2024/ 500
  16. RITUXIMAB [Suspect]
     Active Substance: RITUXIMAB
     Dosage: 09.2024/ 1000
  17. METHOTREXATE [Suspect]
     Active Substance: METHOTREXATE
     Indication: Product used for unknown indication
     Dosage: UNK
  18. ASPIRIN [Concomitant]
     Active Substance: ASPIRIN
     Indication: Product used for unknown indication
     Dosage: UNK
  19. ALENDRONIC ACID [Concomitant]
     Active Substance: ALENDRONIC ACID
     Indication: Product used for unknown indication
     Dosage: UNK
  20. CHOLECALCIFEROL [Concomitant]
     Active Substance: CHOLECALCIFEROL
     Indication: Product used for unknown indication
     Dosage: UNK
  21. DULOXETINE [Concomitant]
     Active Substance: DULOXETINE
     Indication: Product used for unknown indication
     Dosage: UNK
  22. METOPROLOL [Concomitant]
     Active Substance: METOPROLOL
     Indication: Product used for unknown indication
     Dosage: UNK
  23. PANTOPRAZOLE [Concomitant]
     Active Substance: PANTOPRAZOLE
     Indication: Product used for unknown indication
     Dosage: UNK
  24. ROSUVASTATIN [Concomitant]
     Active Substance: ROSUVASTATIN
     Indication: Product used for unknown indication
     Dosage: UNK
  25. ALBUTEROL [Concomitant]
     Active Substance: ALBUTEROL
     Indication: Product used for unknown indication
     Dosage: 0.1 MG/PUFF
  26. METFORMIN\SITAGLIPTIN [Concomitant]
     Active Substance: METFORMIN\SITAGLIPTIN
     Indication: Product used for unknown indication
     Dosage: UNK (50MG/1000MG)
  27. TRAMADOL [Concomitant]
     Active Substance: TRAMADOL
     Indication: Product used for unknown indication
     Dosage: UNK
  28. TROSPIUM CHLORIDE [Concomitant]
     Active Substance: TROSPIUM CHLORIDE
     Indication: Product used for unknown indication
     Dosage: UNK(EXTENDED RELEASE 60MG)
  29. VALSARTAN [Concomitant]
     Active Substance: VALSARTAN
     Indication: Product used for unknown indication
     Dosage: 80 MG
  30. VITAMIN B COMPLEX [Concomitant]
     Active Substance: CYANOCOBALAMIN\DEXPANTHENOL\NIACINAMIDE\PYRIDOXINE HYDROCHLORIDE\RIBOFLAVIN 5^-PHOSPHATE SODIUM\THIA
     Indication: Product used for unknown indication
     Dosage: UNK(100MG/50MG/0.5MG)
  31. CELECOXIB [Concomitant]
     Active Substance: CELECOXIB
     Indication: Pain
     Dosage: 400 MG, QD
     Dates: start: 202306
  32. UMECLIDINIUM BROMIDE\VILANTEROL TRIFENATATE [Concomitant]
     Active Substance: UMECLIDINIUM BROMIDE\VILANTEROL TRIFENATATE
     Indication: Product used for unknown indication
  33. ALBUTEROL [Concomitant]
     Active Substance: ALBUTEROL
     Indication: Product used for unknown indication
  34. IRON [Concomitant]
     Active Substance: IRON
     Indication: Product used for unknown indication
  35. VITAMIN B1+B6+B12 [Concomitant]
     Indication: Product used for unknown indication

REACTIONS (13)
  - Rheumatoid arthritis [Recovered/Resolved]
  - Normochromic normocytic anaemia [Unknown]
  - Klebsiella urinary tract infection [Unknown]
  - Osteoarthritis [Unknown]
  - Hyperkalaemia [Unknown]
  - Pulmonary fibrosis [Unknown]
  - Bronchitis [Unknown]
  - Influenza like illness [Unknown]
  - Arthralgia [Unknown]
  - Therapeutic product effect decreased [Unknown]
  - Emphysema [Unknown]
  - Nodal osteoarthritis [Unknown]
  - Urinary tract infection [Recovered/Resolved]

NARRATIVE: CASE EVENT DATE: 20230516
